FAERS Safety Report 8428212-0 (Version None)
Quarter: 2012Q2

REPORT INFORMATION
  Report Type: 
  Country: None (occurrence: None)
  Receive Date: 20120611
  Receipt Date: 20120604
  Transmission Date: 20120825
  Serious: Yes (Other)
  Sender: FDA-Public Use
  Company Number: CHPA2012FR011902

PATIENT
  Age: 71 Year
  Sex: Female

DRUGS (12)
  1. NICOTINE [Suspect]
     Indication: SMOKING CESSATION THERAPY
     Dosage: 14 MG, QD
     Route: 062
  2. NICOTINE [Suspect]
     Dosage: 42 MG, QD
     Route: 062
  3. LEVOTHYROXINE SODIUM [Concomitant]
  4. ZOCOR [Concomitant]
  5. EBASTINE [Concomitant]
  6. ROHYPNOL [Concomitant]
  7. NICOTINE [Suspect]
     Dosage: 21 MG, QD
     Route: 062
  8. HUMALOG [Concomitant]
  9. NICOTINE [Suspect]
     Dosage: 49 MG, QD
     Route: 062
  10. NICOTINE [Suspect]
     Dosage: 56 MG, QD
     Route: 062
  11. LANTUS [Concomitant]
  12. ESCITALOPRAM [Concomitant]

REACTIONS (7)
  - DIABETES MELLITUS INADEQUATE CONTROL [None]
  - NAUSEA [None]
  - NICOTINE DEPENDENCE [None]
  - TREATMENT NONCOMPLIANCE [None]
  - OVERDOSE [None]
  - WRONG TECHNIQUE IN DRUG USAGE PROCESS [None]
  - DIARRHOEA [None]
